FAERS Safety Report 5243658-X (Version None)
Quarter: 2007Q1

REPORT INFORMATION
  Report Type: 
  Country: None (occurrence: None)
  Receive Date: 20070222
  Receipt Date: 20070212
  Transmission Date: 20070707
  Serious: Yes (Hospitalization)
  Sender: FDA-Public Use
  Company Number: CHWYE632512FEB07

PATIENT
  Age: 73 Year
  Sex: Female

DRUGS (7)
  1. EFFEXOR [Suspect]
     Indication: DEPRESSION
     Route: 048
     Dates: start: 20061120, end: 20061126
  2. EFFEXOR [Suspect]
     Route: 048
     Dates: start: 20061127, end: 20061128
  3. EFFEXOR [Suspect]
     Route: 048
     Dates: start: 20061129, end: 20061203
  4. EFFEXOR [Suspect]
     Route: 048
     Dates: start: 20061208, end: 20061209
  5. SIRDALUD [Concomitant]
     Route: 048
     Dates: start: 20050101
  6. PANTOZOL [Concomitant]
     Indication: GASTRITIS
     Route: 048
     Dates: start: 20060101
  7. ALDACTONE [Concomitant]
     Route: 048
     Dates: start: 20040101

REACTIONS (5)
  - ATRIAL FIBRILLATION [None]
  - ATRIAL FLUTTER [None]
  - CHEST PAIN [None]
  - CONDUCTION DISORDER [None]
  - HYPOTENSION [None]
